FAERS Safety Report 19884835 (Version 1)
Quarter: 2021Q3

REPORT INFORMATION
  Report Type: Spontaneous
  Country: US (occurrence: US)
  Receive Date: 20210924
  Receipt Date: 20210924
  Transmission Date: 20211014
  Serious: Yes (Other)
  Sender: FDA-Public Use
  Company Number: None

PATIENT
  Age: 61 Year
  Sex: Male
  Weight: 113.4 kg

DRUGS (2)
  1. GOLYTELY [Suspect]
     Active Substance: POLYETHYLENE GLYCOL 3350\POTASSIUM CHLORIDE\SODIUM BICARBONATE\SODIUM CHLORIDE\SODIUM SULFATE
     Indication: COLONOSCOPY
     Dosage: ?          QUANTITY:FULL GALLON;OTHER FREQUENCY:8OZ EVERY 10 MINUT;?
     Route: 048
     Dates: start: 20210913, end: 20210913
  2. LOSARTAN. [Concomitant]
     Active Substance: LOSARTAN

REACTIONS (2)
  - Photophobia [None]
  - Eye pain [None]

NARRATIVE: CASE EVENT DATE: 20210914
